FAERS Safety Report 8540421-9 (Version None)
Quarter: 2012Q3

REPORT INFORMATION
  Report Type: 
  Country: None (occurrence: None)
  Receive Date: 20120726
  Receipt Date: 20120312
  Transmission Date: 20120928
  Serious: No
  Sender: FDA-Public Use
  Company Number: US-ASTRAZENECA-2011SE35013

PATIENT
  Age: 51 Year
  Sex: Female
  Weight: 56.7 kg

DRUGS (4)
  1. SEROQUEL [Suspect]
     Route: 048
  2. SEROQUEL [Suspect]
     Indication: BIPOLAR DISORDER
     Route: 048
     Dates: start: 20110101, end: 20110529
  3. SEROQUEL [Suspect]
     Route: 048
     Dates: start: 20110529
  4. SEROQUEL [Suspect]
     Route: 048

REACTIONS (5)
  - MALAISE [None]
  - STRESS [None]
  - DRUG DOSE OMISSION [None]
  - VOMITING [None]
  - PALPITATIONS [None]
